FAERS Safety Report 10553670 (Version 3)
Quarter: 2015Q1

REPORT INFORMATION
  Report Type: Spontaneous
  Country: DE (occurrence: DE)
  Receive Date: 20141030
  Receipt Date: 20150306
  Transmission Date: 20150720
  Serious: Yes (Other)
  Sender: FDA-Public Use
  Company Number: PHHY2014DE139482

PATIENT
  Age: 65 Year
  Sex: Female

DRUGS (2)
  1. ZOMETA [Suspect]
     Active Substance: ZOLEDRONIC ACID
     Dosage: 3.5 MG,EVERY 6 MONTHS
     Route: 042
     Dates: start: 201307, end: 20140711
  2. ZOMETA [Suspect]
     Active Substance: ZOLEDRONIC ACID
     Indication: INVASIVE DUCTAL BREAST CARCINOMA
     Dosage: 4 MG, EVERY 6 MONTH
     Route: 042
     Dates: start: 201001, end: 201307

REACTIONS (7)
  - Osteonecrosis of jaw [Not Recovered/Not Resolved]
  - Swelling [Unknown]
  - Soft tissue infection [Unknown]
  - Erythema [Unknown]
  - Pain in jaw [Unknown]
  - Lymphadenopathy [Unknown]
  - Lymph node pain [Unknown]

NARRATIVE: CASE EVENT DATE: 20140623
